FAERS Safety Report 11701847 (Version 1)
Quarter: 2015Q4

REPORT INFORMATION
  Report Type: Spontaneous
  Country: US (occurrence: US)
  Receive Date: 20151105
  Receipt Date: 20151105
  Transmission Date: 20160304
  Serious: No
  Sender: FDA-Public Use
  Company Number: US-MALLINCKRODT-T201504832

PATIENT
  Age: 79 Year
  Sex: Male
  Weight: 88 kg

DRUGS (22)
  1. CELLCEPT [Concomitant]
     Active Substance: MYCOPHENOLATE MOFETIL\MYCOPHENOLATE MOFETIL HYDROCHLORIDE
     Dosage: 300 MG QD PLUS 200 MG QD
  2. BOTOX [Concomitant]
     Active Substance: ONABOTULINUMTOXINA
     Dosage: 16 INJECTIONS IN FOREHEAD Q3 MONTHS
  3. FENTANYL TRANSDERMAL SYSTEM [Suspect]
     Active Substance: FENTANYL
     Indication: PAIN
     Dosage: 12 MCG/HR, ONE PATCH EVERY 6 DAYS, OVERLAP WITH ONE EVERY 3 DAYS
     Route: 062
     Dates: start: 20150921
  4. SINGULAIR [Concomitant]
     Active Substance: MONTELUKAST SODIUM
     Dosage: 10 MG QD
  5. SULFAMETHAZINE [Concomitant]
     Active Substance: SULFAMETHAZINE
     Dosage: 3X PER WEEK (MWF)
  6. HYDROCODONE BITARTRATE AND ACETAMINOPHEN [Concomitant]
     Active Substance: ACETAMINOPHEN\HYDROCODONE BITARTRATE
     Dosage: 10/325, 2-4 TABS PER DAY PRN
  7. CALCIUM [Concomitant]
     Active Substance: CALCIUM
  8. CLONIDINE. [Concomitant]
     Active Substance: CLONIDINE
     Dosage: 1 MG HS
  9. LISINOPRIL. [Concomitant]
     Active Substance: LISINOPRIL
     Dosage: 20 MG QD
  10. VITAMIN D [Concomitant]
     Active Substance: CHOLECALCIFEROL
     Dosage: 4000 IU QD
  11. CARVEDILOL. [Concomitant]
     Active Substance: CARVEDILOL
     Dosage: 25 MG BID
  12. IMITREX [Concomitant]
     Active Substance: SUMATRIPTAN\SUMATRIPTAN SUCCINATE
     Dosage: PRN
  13. CARAFATE [Concomitant]
     Active Substance: SUCRALFATE
     Dosage: 1G QID (QAC AND HS)
  14. KETOCONAZOLE. [Concomitant]
     Active Substance: KETOCONAZOLE
     Dosage: 60 MG QD
  15. MVI [Concomitant]
     Active Substance: VITAMINS
  16. AVODART [Concomitant]
     Active Substance: DUTASTERIDE
     Dosage: 60 MG QD
  17. MIRALAX [Concomitant]
     Active Substance: POLYETHYLENE GLYCOL 3350
     Dosage: 10 MG QD
  18. PRADAXA [Concomitant]
     Active Substance: DABIGATRAN ETEXILATE MESYLATE
     Dosage: 150 MG BID
  19. SANCTURA [Concomitant]
     Active Substance: TROSPIUM CHLORIDE
     Dosage: 60 MG QD
  20. PANTOPRAZOLE [Concomitant]
     Active Substance: PANTOPRAZOLE SODIUM
     Dosage: 40 MG BID
  21. OCUVITE [Concomitant]
     Active Substance: VITAMINS
  22. VITAMIN C [Concomitant]
     Active Substance: ASCORBIC ACID
     Dosage: 1000 BID

REACTIONS (3)
  - Drug ineffective [Not Recovered/Not Resolved]
  - Off label use [Not Recovered/Not Resolved]
  - Product adhesion issue [Not Recovered/Not Resolved]

NARRATIVE: CASE EVENT DATE: 20150921
